FAERS Safety Report 7603071-4 (Version None)
Quarter: 2011Q3

REPORT INFORMATION
  Report Type: 
  Country: None (occurrence: None)
  Receive Date: 20110712
  Receipt Date: 20110706
  Transmission Date: 20111222
  Serious: Yes (Death)
  Sender: FDA-Public Use
  Company Number: JP-GENZYME-THYM-1002587

PATIENT
  Sex: Female

DRUGS (5)
  1. THYMOGLOBULIN [Suspect]
     Indication: BONE MARROW CONDITIONING REGIMEN
  2. FLUDARA [Suspect]
     Indication: ADULT T-CELL LYMPHOMA/LEUKAEMIA
     Route: 042
  3. FLUDARA [Suspect]
     Indication: BONE MARROW CONDITIONING REGIMEN
  4. BUSULFAN [Concomitant]
     Indication: PRODUCT USED FOR UNKNOWN INDICATION
     Route: 042
  5. THYMOGLOBULIN [Suspect]
     Indication: ADULT T-CELL LYMPHOMA/LEUKAEMIA
     Dosage: 1.25 MG/KG, QD
     Route: 042
     Dates: start: 20110110, end: 20110110

REACTIONS (3)
  - BLOOD PRESSURE DECREASED [None]
  - GRAFT VERSUS HOST DISEASE [None]
  - PYREXIA [None]
